FAERS Safety Report 16448429 (Version 3)
Quarter: 2021Q3

REPORT INFORMATION
  Report Type: Report from Study
  Country: PT (occurrence: PT)
  Receive Date: 20190619
  Receipt Date: 20210803
  Transmission Date: 20211014
  Serious: Yes (Hospitalization)
  Sender: FDA-Public Use
  Company Number: PT-CELLTRION INC.-2019PT021781

PATIENT

DRUGS (30)
  1. PARACETAMOL [Concomitant]
     Active Substance: ACETAMINOPHEN
     Dosage: 1 G
     Dates: start: 20140416
  2. ZOLEDRONIC ACID [Concomitant]
     Active Substance: ZOLEDRONIC ACID
     Indication: METASTASES TO BONE
     Dosage: 4 MG, MONTHLY
     Dates: start: 20140403, end: 20151217
  3. DICLOFENAC [Concomitant]
     Active Substance: DICLOFENAC
     Dosage: 50 MG
     Dates: start: 20181225
  4. BISOPROLOL [Concomitant]
     Active Substance: BISOPROLOL
     Dosage: 1.25 MG
     Dates: start: 20190221, end: 20190221
  5. EUTHYROX [Concomitant]
     Active Substance: LEVOTHYROXINE SODIUM
     Dosage: 75 UG
     Dates: start: 20170530
  6. OMEPRAZOLE. [Concomitant]
     Active Substance: OMEPRAZOLE
     Dosage: 20 MG
     Dates: start: 20150513
  7. PARACETAMOL [Concomitant]
     Active Substance: ACETAMINOPHEN
     Dosage: 1 G AS REQUIRED
     Dates: start: 20140219, end: 20140423
  8. ZOLEDRONIC ACID [Concomitant]
     Active Substance: ZOLEDRONIC ACID
     Dosage: 4 MG, EVERY 3 MONTHS
     Dates: start: 20160317
  9. BISOPROLOL [Concomitant]
     Active Substance: BISOPROLOL
     Dosage: 5 MG
     Dates: start: 20190222, end: 20190314
  10. CORDARONE [Concomitant]
     Active Substance: AMIODARONE HYDROCHLORIDE
     Dosage: 100 MG
     Dates: start: 20170409
  11. PARACETAMOL [Concomitant]
     Active Substance: ACETAMINOPHEN
     Dosage: 1 G
     Dates: start: 20170827, end: 20170828
  12. TRASTUZUMAB (UNKNOWN) [Suspect]
     Active Substance: TRASTUZUMAB
     Indication: HER2 POSITIVE BREAST CANCER
     Dosage: 8 MG/KG EVERY 3 WEEKS, LOADING DOSE: ON DAY 1 OR DAY 2 OF CYCLE 1; ON 29/JAN/2019, SHE RECEIVED MOST
     Route: 042
     Dates: start: 20140130
  13. BISOPROLOL [Concomitant]
     Active Substance: BISOPROLOL
     Dosage: 1.25 MG
     Dates: start: 20190314, end: 20190417
  14. LISINOPRIL HIDROCLOROTIAZIDA [Concomitant]
     Active Substance: HYDROCHLOROTHIAZIDE\LISINOPRIL
     Dosage: 10+6.25 MG
     Dates: start: 2013, end: 20170509
  15. TRASTUZUMAB (UNKNOWN) [Suspect]
     Active Substance: TRASTUZUMAB
     Dosage: 588 MG EVERY 3 WEEKS, MAINTAINANCE DOSE: ON DAY 1 OR DAY 2 OF EACH SUBSEQUENT 3?WEEK CYCLE; ON 29/JA
     Route: 042
  16. METOCLOPRAMIDE. [Concomitant]
     Active Substance: METOCLOPRAMIDE
     Dosage: 10 MG
     Dates: start: 20150513
  17. LISINOPRIL HIDROCLOROTIAZIDA [Concomitant]
     Active Substance: HYDROCHLOROTHIAZIDE\LISINOPRIL
     Dosage: UNK
     Dates: start: 2007, end: 201705
  18. CORDARONE [Concomitant]
     Active Substance: AMIODARONE HYDROCHLORIDE
     Dosage: 200 MG
     Dates: start: 2013, end: 20170409
  19. PARACETAMOL [Concomitant]
     Active Substance: ACETAMINOPHEN
     Indication: PAIN
     Dosage: 1500 MG
     Dates: start: 20181217, end: 20181222
  20. PERTUZUMAB. [Concomitant]
     Active Substance: PERTUZUMAB
     Indication: HER2 POSITIVE BREAST CANCER
     Dosage: 840 MG EVERY 3 WEEKS (ON DAY 1 OR DAY 2 OF EACH SUBSEQUENT 3 WEEK CYCLE. LOADING DOSE; ON 29/JAN/201
     Route: 042
     Dates: start: 20140129
  21. PERTUZUMAB. [Concomitant]
     Active Substance: PERTUZUMAB
     Dosage: 420 MG EVERY 3 WEEKS, ON DAY 1 OR DAY 2 OF EACH SUBSEQUENT 3?WEEK CYCLE. MAINTAINANCE DOSE; ON 29/JA
     Route: 042
  22. BRUFEN [Concomitant]
     Active Substance: IBUPROFEN
     Dosage: 1200 MG
     Dates: start: 20170829
  23. ATORVASTATIN [Concomitant]
     Active Substance: ATORVASTATIN
     Dosage: 10 MG
     Dates: start: 2007
  24. ALPRAZOLAM. [Concomitant]
     Active Substance: ALPRAZOLAM
     Dosage: 1 MG
     Dates: start: 2007
  25. APIXABAN [Concomitant]
     Active Substance: APIXABAN
     Dosage: 10 MG
     Dates: start: 20190222
  26. METOCLOPRAMIDE. [Concomitant]
     Active Substance: METOCLOPRAMIDE
     Dosage: 10 MG
     Dates: start: 20140423, end: 20140514
  27. DICLOFENAC [Concomitant]
     Active Substance: DICLOFENAC
     Dosage: 100 MG
     Dates: start: 2013
  28. AMLODIPINE [Concomitant]
     Active Substance: AMLODIPINE BESYLATE
     Dosage: 10 MG
     Dates: start: 201807
  29. FURADANTINE MC [Concomitant]
     Dosage: 100 MG
     Dates: start: 20181231
  30. PERINDOPRIL [Concomitant]
     Active Substance: PERINDOPRIL
     Dosage: 5 MG
     Dates: start: 201808

REACTIONS (1)
  - Atrial fibrillation [Recovered/Resolved]

NARRATIVE: CASE EVENT DATE: 20190216
